FAERS Safety Report 15233588 (Version 2)
Quarter: 2018Q4

REPORT INFORMATION
  Report Type: Spontaneous
  Country: AT (occurrence: AT)
  Receive Date: 20180802
  Receipt Date: 20181009
  Transmission Date: 20190204
  Serious: Yes (Other)
  Sender: FDA-Public Use
  Company Number: AT-ELI_LILLY_AND_COMPANY-AT201807011845

PATIENT
  Age: 84 Year
  Sex: Female

DRUGS (8)
  1. 5-FLUOROURACIL                     /00098801/ [Concomitant]
     Active Substance: FLUOROURACIL
     Indication: PALLIATIVE CARE
     Dosage: UNK, CYCLICAL
     Route: 065
     Dates: start: 201701, end: 201707
  2. RAMUCIRUMAB [Suspect]
     Active Substance: RAMUCIRUMAB
     Indication: PALLIATIVE CARE
     Dosage: UNK, CYCLICAL
     Route: 065
     Dates: start: 201701, end: 201707
  3. FOLINIC ACID [Concomitant]
     Active Substance: LEUCOVORIN
     Indication: COLON CANCER
  4. IRINOTECAN [Concomitant]
     Active Substance: IRINOTECAN
     Indication: COLON CANCER
  5. FOLINIC ACID [Concomitant]
     Active Substance: LEUCOVORIN
     Indication: PALLIATIVE CARE
     Dosage: UNK, CYCLICAL
     Route: 065
     Dates: start: 201701, end: 201707
  6. IRINOTECAN [Concomitant]
     Active Substance: IRINOTECAN
     Indication: PALLIATIVE CARE
     Dosage: UNK, CYCLICAL
     Route: 065
     Dates: start: 201701, end: 201707
  7. RAMUCIRUMAB [Suspect]
     Active Substance: RAMUCIRUMAB
     Indication: COLON CANCER
  8. 5-FLUOROURACIL                     /00098801/ [Concomitant]
     Active Substance: FLUOROURACIL
     Indication: COLON CANCER

REACTIONS (4)
  - Malignant neoplasm progression [Unknown]
  - Diarrhoea [Unknown]
  - Neutropenia [Unknown]
  - Polyneuropathy [Unknown]

NARRATIVE: CASE EVENT DATE: 2017
